FAERS Safety Report 15026914 (Version 1)
Quarter: 2018Q2

REPORT INFORMATION
  Report Type: Spontaneous
  Country: US (occurrence: US)
  Receive Date: 20180619
  Receipt Date: 20180619
  Transmission Date: 20180711
  Serious: Yes (Other)
  Sender: FDA-Public Use
  Company Number: US-B.I. PHARMACEUTICALS,INC./RIDGEFIELD-2018-BI-030802

PATIENT
  Sex: Female

DRUGS (2)
  1. GILOTRIF [Suspect]
     Active Substance: AFATINIB
     Indication: NON-SMALL CELL LUNG CANCER METASTATIC
     Route: 048
     Dates: start: 201705, end: 201708
  2. GILOTRIF [Suspect]
     Active Substance: AFATINIB
     Dosage: ADMINISTRATION CORRECT? YES ?ACTION(S) TAKEN WITH PRODUCT: DOSE NOT CHANGED
     Route: 048
     Dates: start: 201708, end: 20180228

REACTIONS (7)
  - Lung neoplasm malignant [Unknown]
  - Lung neoplasm malignant [Unknown]
  - Bone lesion [Unknown]
  - Pulmonary mass [Unknown]
  - Toxicity to various agents [Unknown]
  - Horner^s syndrome [Unknown]
  - Central nervous system lesion [Unknown]

NARRATIVE: CASE EVENT DATE: 201708
